FAERS Safety Report 7816905-5 (Version None)
Quarter: 2011Q4

REPORT INFORMATION
  Report Type: 
  Country: None (occurrence: None)
  Receive Date: 20111017
  Receipt Date: 20111013
  Transmission Date: 20120403
  Serious: No
  Sender: FDA-Public Use
  Company Number: US-PFIZER INC-2011245525

PATIENT
  Sex: Female

DRUGS (1)
  1. ZMAX [Suspect]
     Dosage: UNK
     Route: 048
     Dates: start: 20111001

REACTIONS (1)
  - ABDOMINAL DISCOMFORT [None]
